FAERS Safety Report 16798866 (Version 1)
Quarter: 2019Q3

REPORT INFORMATION
  Report Type: Spontaneous
  Country: US (occurrence: US)
  Receive Date: 20190722
  Receipt Date: 20190722
  Transmission Date: 20191005
  Serious: Yes (Death, Hospitalization)
  Sender: FDA-Public Use
  Company Number: None

PATIENT
  Age: 69 Year
  Sex: Female
  Weight: 76.5 kg

DRUGS (23)
  1. OMEPRAZOLE 20MG DELAYED RELEASE CAPSULE [Concomitant]
  2. TIOTROPIUM 18 MCG CAPSULE FOR INHALER [Concomitant]
  3. ASPIRIN 81MG 1 TABLET ONCE DAILY (CHEWABLE TABLET) [Suspect]
     Active Substance: ASPIRIN
  4. ALBUTEROL 90 MCG/ACUATION MFA INHALER [Concomitant]
  5. BUDESONIDE-FORMOTEROL 160-4.5 MCG/ACTUATION INHALER [Concomitant]
  6. SERTRALINE 100MG TABLET [Concomitant]
     Active Substance: SERTRALINE HYDROCHLORIDE
  7. TORSEMIDE 20 MG TABLET [Concomitant]
  8. ATORVASTATIN 80MG TABLET [Concomitant]
     Active Substance: ATORVASTATIN
  9. SPIRONOLACTONE 25MG TABLET [Concomitant]
     Active Substance: SPIRONOLACTONE
  10. BENZONATE 100 MG CAPSULE [Concomitant]
  11. FLUTICASONE 50 MCG/ACTUATION NASAL SPRAY [Concomitant]
  12. BUPROPION 150 MG 24HR TABLET [Concomitant]
  13. CHLORTHALIDONE 25MG TABLET [Concomitant]
  14. METFORMIN 1000MG TABLET [Concomitant]
  15. APIXABAN 5 MG [Suspect]
     Active Substance: APIXABAN
     Indication: STENT PLACEMENT
     Route: 048
     Dates: start: 20190223, end: 20190624
  16. CANAGLIFLOZIN 100 MG TABLET [Concomitant]
  17. GUAIFENESIN 100 MG/5 ML LIQUID [Concomitant]
  18. LOSARTAN 25MG TABLET [Concomitant]
  19. CLOPIDOGREL [Suspect]
     Active Substance: CLOPIDOGREL BISULFATE
     Route: 048
  20. ALPRAZOLAM 2MG TABLET [Concomitant]
  21. PROPYLENE GLYCOL 0.6% OPHTHALMIC SOLUTION [Concomitant]
  22. BISOPROLOL 10MG TABLET [Concomitant]
  23. NOVOLOG 100 UNIT/ML INJECTION [Concomitant]

REACTIONS (12)
  - Hepatic failure [None]
  - Weight decreased [None]
  - Haemoglobin decreased [None]
  - Renal failure [None]
  - Epistaxis [None]
  - Cardiac tamponade [None]
  - Gastrointestinal haemorrhage [None]
  - Dizziness [None]
  - Nausea [None]
  - Malaise [None]
  - Hypophagia [None]
  - Diabetic ketoacidosis [None]

NARRATIVE: CASE EVENT DATE: 20190627
